FAERS Safety Report 9973552 (Version 2)
Quarter: 2014Q1

REPORT INFORMATION
  Report Type: Spontaneous
  Country: TR (occurrence: TR)
  Receive Date: 20140306
  Receipt Date: 20140319
  Transmission Date: 20141002
  Serious: Yes (Hospitalization)
  Sender: FDA-Public Use
  Company Number: TR-BAXTER-2014BAX009858

PATIENT
  Age: 64 Year
  Sex: Female
  Weight: 75 kg

DRUGS (5)
  1. LAKTATLI RINGER SOL?SYONU CAM [Suspect]
     Indication: EYE IRRIGATION
     Route: 047
     Dates: start: 20140214, end: 20140214
  2. LAKTATLI RINGER SOL?SYONU CAM [Suspect]
     Indication: OFF LABEL USE
  3. SODIUM HYALURONATE [Suspect]
     Indication: CATARACT OPERATION
     Route: 065
     Dates: start: 20140214, end: 20140214
  4. ZINNAT [Suspect]
     Indication: MEDICATION DILUTION
     Route: 042
     Dates: start: 20140214, end: 20140214
  5. ARITMAL [Suspect]
     Indication: ANAESTHESIA
     Route: 065
     Dates: start: 20140214, end: 20140214

REACTIONS (4)
  - Toxic anterior segment syndrome [Recovering/Resolving]
  - Poor quality drug administered [Recovering/Resolving]
  - Product contamination physical [Recovering/Resolving]
  - Product deposit [Recovering/Resolving]
